FAERS Safety Report 15769735 (Version 2)
Quarter: 2019Q1

REPORT INFORMATION
  Report Type: Spontaneous
  Country: FR (occurrence: FR)
  Receive Date: 20181228
  Receipt Date: 20190312
  Transmission Date: 20190417
  Serious: Yes (Life-Threatening, Other)
  Sender: FDA-Public Use
  Company Number: FR-AUROBINDO-AUR-APL-2018-062953

PATIENT

DRUGS (2)
  1. FLANID [Suspect]
     Active Substance: TIAPROFENIC ACID
     Indication: HEADACHE
     Dosage: 1.6 GRAM
     Route: 048
     Dates: start: 20181117, end: 20181117
  2. PARACETAMOL [Suspect]
     Active Substance: ACETAMINOPHEN
     Indication: HEADACHE
     Dosage: 11 GRAM IN TOTAL FOR 2 DAYS
     Route: 048
     Dates: start: 20181117, end: 20181118

REACTIONS (3)
  - Medication error [Recovered/Resolved]
  - Hepatitis acute [Recovered/Resolved]
  - Overdose [Unknown]

NARRATIVE: CASE EVENT DATE: 20181117
